FAERS Safety Report 6769719-1 (Version None)
Quarter: 2010Q2

REPORT INFORMATION
  Report Type: 
  Country: None (occurrence: None)
  Receive Date: 20100615
  Receipt Date: 20100602
  Transmission Date: 20101027
  Serious: Yes (Other)
  Sender: FDA-Public Use
  Company Number: PHHY2010MX36892

PATIENT
  Age: 51 Year
  Sex: Female

DRUGS (1)
  1. ZELMAC [Suspect]
     Indication: IRRITABLE BOWEL SYNDROME
     Dosage: 6 MG, 1 TAB DAILY
     Route: 048

REACTIONS (1)
  - CENTRAL NERVOUS SYSTEM INFLAMMATION [None]
